FAERS Safety Report 7371414-5 (Version None)
Quarter: 2011Q1

REPORT INFORMATION
  Report Type: 
  Country: None (occurrence: None)
  Receive Date: 20110324
  Receipt Date: 20110316
  Transmission Date: 20110831
  Serious: Yes (Death)
  Sender: FDA-Public Use
  Company Number: GB-JNJFOC-20110307420

PATIENT
  Sex: Female

DRUGS (16)
  1. CARBIDOPA [Concomitant]
     Indication: PARKINSON'S DISEASE
     Route: 065
  2. CARBIMAZOLE [Concomitant]
     Route: 048
  3. ASPIRIN [Concomitant]
     Route: 048
  4. FUROSEMIDE [Concomitant]
     Route: 048
  5. LACTULOSE [Concomitant]
     Route: 048
  6. SINEMET CR [Concomitant]
     Route: 048
  7. FORTISIP [Concomitant]
     Route: 065
  8. IRON [Concomitant]
     Route: 048
  9. SPARTEINE [Concomitant]
     Route: 048
  10. BISOPROLOL [Concomitant]
     Route: 065
  11. SINEMET [Concomitant]
     Route: 048
  12. LEVODOPA [Concomitant]
     Indication: PARKINSON'S DISEASE
     Route: 065
  13. AMOXIDAL [Concomitant]
     Route: 065
  14. RISPERDAL [Suspect]
     Indication: PARKINSON'S DISEASE
     Route: 065
  15. ROPINIROLE [Suspect]
     Indication: PARKINSON'S DISEASE
     Route: 048
  16. DIGOXIN [Concomitant]
     Route: 048

REACTIONS (3)
  - MEDICATION ERROR [None]
  - OFF LABEL USE [None]
  - DEATH [None]
